FAERS Safety Report 5468407-1 (Version None)
Quarter: 2007Q3

REPORT INFORMATION
  Report Type: 
  Country: None (occurrence: None)
  Receive Date: 20070926
  Receipt Date: 20070917
  Transmission Date: 20080115
  Serious: Yes (Other)
  Sender: FDA-Public Use
  Company Number: US-ROCHE-518444

PATIENT
  Age: 55 Year
  Sex: Female

DRUGS (4)
  1. PEG-INTERFERON A-2A (RO 25-8310) [Suspect]
     Route: 065
     Dates: start: 20070521
  2. PEG-INTERFERON A-2A (RO 25-8310) [Suspect]
     Dosage: DOSE REDUCED AT AN UNSPECIFIED DATE
     Route: 065
  3. RIBAVIRIN [Suspect]
     Route: 065
     Dates: start: 20070521
  4. RIBAVIRIN [Suspect]
     Dosage: REPORTS BEING ON AND OFF THE PILLS.
     Route: 065

REACTIONS (1)
  - DEHYDRATION [None]
